FAERS Safety Report 10289422 (Version 1)
Quarter: 2014Q3

REPORT INFORMATION
  Report Type: Spontaneous
  Country: NL (occurrence: NL)
  Receive Date: 20140710
  Receipt Date: 20140710
  Transmission Date: 20150326
  Serious: Yes (Death, Hospitalization, Other)
  Sender: FDA-Public Use
  Company Number: PHHY2014NL082526

PATIENT
  Age: 70 Year
  Sex: Female

DRUGS (5)
  1. SEVOFLURANE. [Concomitant]
     Active Substance: SEVOFLURANE
     Indication: ANAESTHESIA
  2. METHYLENE BLUE. [Suspect]
     Active Substance: METHYLENE BLUE
     Dosage: 1 G
     Route: 042
  3. PROPOFOL. [Concomitant]
     Active Substance: PROPOFOL
     Indication: ANAESTHESIA
  4. VENLAFAXINE [Interacting]
     Active Substance: VENLAFAXINE HYDROCHLORIDE
     Indication: AFFECTIVE DISORDER
     Dosage: 75 MG, BID
  5. ATRACURIUM [Concomitant]
     Active Substance: ATRACURIUM
     Indication: HYPOTONIA

REACTIONS (19)
  - Salivary hypersecretion [Unknown]
  - Circulatory collapse [Fatal]
  - Depressed level of consciousness [Unknown]
  - Agitation [Unknown]
  - Hyperreflexia [Unknown]
  - Serotonin syndrome [Unknown]
  - Hyperthermia [Unknown]
  - Dysarthria [Unknown]
  - Opisthotonus [Unknown]
  - Drug interaction [Unknown]
  - Haemodynamic instability [Unknown]
  - Hyperhidrosis [Unknown]
  - Psychomotor hyperactivity [Unknown]
  - Mydriasis [Unknown]
  - Clonus [Unknown]
  - Extrapyramidal disorder [Unknown]
  - Respiratory disorder [Unknown]
  - Mental impairment [Unknown]
  - Neurological decompensation [Unknown]
